FAERS Safety Report 7204941-1 (Version None)
Quarter: 2010Q4

REPORT INFORMATION
  Report Type: 
  Country: None (occurrence: None)
  Receive Date: 20101217
  Receipt Date: 20101208
  Transmission Date: 20110411
  Serious: Yes (Death, Hospitalization)
  Sender: FDA-Public Use
  Company Number: 2010AC000182

PATIENT
  Age: 84 Year
  Sex: Female

DRUGS (19)
  1. DIGOXIN [Suspect]
     Indication: CARDIAC DISORDER
     Dosage: 0.125 MG;QD;PO
     Route: 048
     Dates: start: 20080116, end: 20080222
  2. CARVEDILOL [Concomitant]
  3. KLONOPIN [Concomitant]
  4. PLAVIX [Concomitant]
  5. CYMBALTA [Concomitant]
  6. ENALAPRIL [Concomitant]
  7. IRON [Concomitant]
  8. PROLOSEC [Concomitant]
  9. LACTOBACILLUS-ACIDOPHILUS [Concomitant]
  10. LOVASTATIN [Concomitant]
  11. NIACIN [Concomitant]
  12. PREDNISONE [Concomitant]
  13. ZOLPIDEM [Concomitant]
  14. ALDACTONE [Concomitant]
  15. GLIPIZIDE [Concomitant]
  16. SPIRONOLACTONE [Concomitant]
  17. PROZAC [Concomitant]
  18. AMBIEN [Concomitant]
  19. CYMBALTA [Concomitant]

REACTIONS (16)
  - BLOOD CREATININE INCREASED [None]
  - BLOOD UREA INCREASED [None]
  - BRADYCARDIA [None]
  - DECREASED APPETITE [None]
  - DIZZINESS [None]
  - EJECTION FRACTION DECREASED [None]
  - HEART RATE IRREGULAR [None]
  - INJURY [None]
  - INSOMNIA [None]
  - MENTAL STATUS CHANGES [None]
  - NAUSEA [None]
  - PALPITATIONS [None]
  - PARANOIA [None]
  - POLLAKIURIA [None]
  - VISUAL IMPAIRMENT [None]
  - VOMITING [None]
